FAERS Safety Report 7417875-4 (Version None)
Quarter: 2011Q2

REPORT INFORMATION
  Report Type: 
  Country: None (occurrence: None)
  Receive Date: 20110415
  Receipt Date: 20110413
  Transmission Date: 20111010
  Serious: Yes (Death, Life-Threatening, Hospitalization)
  Sender: FDA-Public Use
  Company Number: DE-SANOFI-AVENTIS-2011SA022403

PATIENT
  Age: 69 Year
  Sex: Male
  Weight: 91.2 kg

DRUGS (3)
  1. CISPLATIN [Suspect]
     Indication: METASTATIC GASTRIC CANCER
     Route: 041
     Dates: start: 20110317, end: 20110317
  2. CETUXIMAB [Suspect]
     Indication: METASTATIC GASTRIC CANCER
     Route: 041
     Dates: start: 20110317, end: 20110317
  3. DOCETAXEL [Suspect]
     Indication: METASTATIC GASTRIC CANCER
     Route: 041
     Dates: start: 20110317, end: 20110317

REACTIONS (3)
  - MULTI-ORGAN FAILURE [None]
  - PSEUDOMEMBRANOUS COLITIS [None]
  - SEPTIC SHOCK [None]
